FAERS Safety Report 6850384-X (Version None)
Quarter: 2010Q3

REPORT INFORMATION
  Report Type: 
  Country: None (occurrence: None)
  Receive Date: 20100716
  Receipt Date: 20080311
  Transmission Date: 20110219
  Serious: No
  Sender: FDA-Public Use
  Company Number: US-PFIZER INC-2007086674

PATIENT
  Sex: Male
  Weight: 92.1 kg

DRUGS (1)
  1. CHANTIX [Suspect]
     Indication: SMOKING CESSATION THERAPY
     Dates: start: 20070203, end: 20070701

REACTIONS (2)
  - DENTAL CARIES [None]
  - HYPERPHAGIA [None]
